FAERS Safety Report 4421613-7 (Version None)
Quarter: 2004Q3

REPORT INFORMATION
  Report Type: 
  Country: None (occurrence: None)
  Receive Date: 20040805
  Receipt Date: 20040728
  Transmission Date: 20050211
  Serious: Yes (Hospitalization)
  Sender: FDA-Public Use
  Company Number: BR-JNJFOC-20040800219

PATIENT
  Age: 2 Month
  Sex: Male
  Weight: 4 kg

DRUGS (1)
  1. TYLENOL [Suspect]
     Indication: INFLUENZA LIKE ILLNESS
     Dates: start: 20040721, end: 20040722

REACTIONS (7)
  - ARRHYTHMIA [None]
  - CARDIAC ARREST [None]
  - COMA [None]
  - HAEMOGLOBIN DECREASED [None]
  - HAEMOLYSIS [None]
  - PALLOR [None]
  - RESPIRATORY ARREST [None]
